FAERS Safety Report 5805364-X (Version None)
Quarter: 2008Q3

REPORT INFORMATION
  Report Type: 
  Country: None (occurrence: None)
  Receive Date: 20080702
  Receipt Date: 20070529
  Transmission Date: 20090109
  Serious: Yes (Other)
  Sender: FDA-Public Use
  Company Number: HQWYE436031MAY07

PATIENT
  Age: 13 Year
  Sex: Male
  Weight: 43.13 kg

DRUGS (2)
  1. ADVIL [Suspect]
     Indication: HEADACHE
     Dosage: 1 TABLET X 1, ORAL
     Route: 048
     Dates: start: 20070101, end: 20070101
  2. ALBUTEROL [Concomitant]

REACTIONS (3)
  - DYSPHAGIA [None]
  - RETCHING [None]
  - VOMITING [None]
